FAERS Safety Report 18312685 (Version 1)
Quarter: 2020Q3

REPORT INFORMATION
  Report Type: Spontaneous
  Country: US (occurrence: US)
  Receive Date: 20200925
  Receipt Date: 20200925
  Transmission Date: 20201103
  Serious: Yes (Other)
  Sender: FDA-Public Use
  Company Number: None

PATIENT
  Age: 73 Year
  Sex: Female

DRUGS (1)
  1. REPATHA [Suspect]
     Active Substance: EVOLOCUMAB
     Dosage: ?          OTHER FREQUENCY:EVERY 14 DAYS;?
     Route: 058
     Dates: start: 20191029, end: 20200827

REACTIONS (10)
  - Infection [None]
  - Agitation [None]
  - Arthralgia [None]
  - Pain [None]
  - Rash erythematous [None]
  - Balance disorder [None]
  - Sinusitis [None]
  - Nausea [None]
  - Gastrointestinal disorder [None]
  - Insomnia [None]

NARRATIVE: CASE EVENT DATE: 20200826
